FAERS Safety Report 4284949-9 (Version None)
Quarter: 2004Q1

REPORT INFORMATION
  Report Type: 
  Country: None (occurrence: None)
  Receive Date: 20040204
  Receipt Date: 20040126
  Transmission Date: 20041129
  Serious: Yes (Other)
  Sender: FDA-Public Use
  Company Number: PHEH2004US01250

PATIENT
  Age: 63 Year
  Sex: Female

DRUGS (3)
  1. ZELNORM [Suspect]
     Indication: IRRITABLE BOWEL SYNDROME
     Dosage: 6 MG, BID
     Route: 048
     Dates: start: 20021101, end: 20031101
  2. EVISTA [Concomitant]
  3. THYROID TAB [Concomitant]
     Dosage: UNK, UNK

REACTIONS (6)
  - ALANINE AMINOTRANSFERASE INCREASED [None]
  - ASPARTATE AMINOTRANSFERASE INCREASED [None]
  - FALLOPIAN TUBE CYST [None]
  - GAMMA-GLUTAMYLTRANSFERASE [None]
  - HAEMATOSALPINX [None]
  - HEPATIC ENZYME INCREASED [None]
